FAERS Safety Report 23079840 (Version 1)
Quarter: 2023Q4

REPORT INFORMATION
  Report Type: Spontaneous
  Country: US (occurrence: US)
  Receive Date: 20231018
  Receipt Date: 20231018
  Transmission Date: 20240109
  Serious: No
  Sender: FDA-Public Use
  Company Number: US-MYLANLABS-2023M1099603

PATIENT
  Sex: Female

DRUGS (1)
  1. ESTRADIOL [Suspect]
     Active Substance: ESTRADIOL
     Indication: Hysterectomy
     Dosage: 0.05 MILLIGRAM
     Route: 062

REACTIONS (2)
  - Skin disorder [Unknown]
  - Mental disorder [Unknown]
